FAERS Safety Report 23491682 (Version 1)
Quarter: 2024Q1

REPORT INFORMATION
  Report Type: Spontaneous
  Country: FR (occurrence: FR)
  Receive Date: 20240207
  Receipt Date: 20240207
  Transmission Date: 20240409
  Serious: Yes (Other)
  Sender: FDA-Public Use
  Company Number: None

PATIENT
  Age: 18 Year
  Sex: Female

DRUGS (1)
  1. TRAMADOL HYDROCHLORIDE [Suspect]
     Active Substance: TRAMADOL HYDROCHLORIDE
     Indication: Product used for unknown indication
     Dosage: CHLORHYDRATE DE TRAMADOL
     Route: 065
     Dates: start: 202306

REACTIONS (3)
  - Altered state of consciousness [Unknown]
  - Drug use disorder [Unknown]
  - Chest pain [Unknown]
